FAERS Safety Report 9722423 (Version 5)
Quarter: 2017Q1

REPORT INFORMATION
  Report Type: Report from Study
  Country: US (occurrence: US)
  Receive Date: 20131202
  Receipt Date: 20170330
  Transmission Date: 20170429
  Serious: Yes (Other)
  Sender: FDA-Public Use
  Company Number: PHEH2012US009326

PATIENT
  Age: 40 Year
  Sex: Female
  Weight: 133 kg

DRUGS (1)
  1. GILENYA [Suspect]
     Active Substance: FINGOLIMOD HYDROCHLORIDE
     Indication: RELAPSING-REMITTING MULTIPLE SCLEROSIS
     Dosage: 0.5 MG, QD
     Route: 048
     Dates: start: 201103

REACTIONS (12)
  - Nasal congestion [Recovered/Resolved]
  - Eczema [Not Recovered/Not Resolved]
  - Hypoaesthesia oral [Recovering/Resolving]
  - Stress urinary incontinence [Recovering/Resolving]
  - Optic neuritis [Unknown]
  - Hypoaesthesia [Recovering/Resolving]
  - Multiple sclerosis relapse [Recovering/Resolving]
  - Dysphagia [Recovering/Resolving]
  - Cough [Recovering/Resolving]
  - Multiple sclerosis relapse [Recovered/Resolved]
  - Fatigue [Unknown]
  - Nasopharyngitis [Recovered/Resolved]

NARRATIVE: CASE EVENT DATE: 2011
